FAERS Safety Report 23945683 (Version 2)
Quarter: 2024Q2

REPORT INFORMATION
  Report Type: Spontaneous
  Country: FR (occurrence: FR)
  Receive Date: 20240606
  Receipt Date: 20240619
  Transmission Date: 20240716
  Serious: Yes (Hospitalization)
  Sender: FDA-Public Use
  Company Number: FR-ROCHE-3566175

PATIENT
  Age: 57 Year
  Sex: Male
  Weight: 74.5 kg

DRUGS (27)
  1. DOXORUBICIN HYDROCHLORIDE [Suspect]
     Active Substance: DOXORUBICIN HYDROCHLORIDE
     Indication: Richter^s syndrome
     Dosage: 50 MG/M2, C1D1
     Route: 042
     Dates: start: 20240330
  2. DOXORUBICIN HYDROCHLORIDE [Suspect]
     Active Substance: DOXORUBICIN HYDROCHLORIDE
     Dosage: C1D5
     Route: 042
     Dates: start: 20240403
  3. DOXORUBICIN HYDROCHLORIDE [Suspect]
     Active Substance: DOXORUBICIN HYDROCHLORIDE
     Dosage: C2D5
     Route: 042
     Dates: start: 20240422
  4. DOXORUBICIN HYDROCHLORIDE [Suspect]
     Active Substance: DOXORUBICIN HYDROCHLORIDE
     Dosage: C2D5
     Route: 042
     Dates: start: 20240426
  5. VINCRISTINE SULFATE [Suspect]
     Active Substance: VINCRISTINE SULFATE
     Indication: Richter^s syndrome
     Dosage: 1.4 MG/M2, C1D1
     Route: 042
     Dates: start: 20240330
  6. VINCRISTINE SULFATE [Suspect]
     Active Substance: VINCRISTINE SULFATE
     Dosage: C1D5
     Route: 042
     Dates: start: 20240403
  7. VINCRISTINE SULFATE [Suspect]
     Active Substance: VINCRISTINE SULFATE
     Dosage: C2D5
     Route: 042
     Dates: start: 20240422
  8. VINCRISTINE SULFATE [Suspect]
     Active Substance: VINCRISTINE SULFATE
     Dosage: C2D5
     Route: 042
     Dates: start: 20240426
  9. RITUXIMAB [Suspect]
     Active Substance: RITUXIMAB
     Indication: Richter^s syndrome
     Dosage: 375 MG/M2, CYCLE 1 DAY 1, AS PER PROTOCOL
     Route: 042
     Dates: start: 20240330
  10. RITUXIMAB [Suspect]
     Active Substance: RITUXIMAB
     Dosage: CYCLE 1 DAY 5,
     Route: 042
     Dates: start: 20240503
  11. CYCLOPHOSPHAMIDE [Suspect]
     Active Substance: CYCLOPHOSPHAMIDE
     Indication: Richter^s syndrome
     Dosage: C1D1
     Route: 042
     Dates: start: 20240330
  12. CYCLOPHOSPHAMIDE [Suspect]
     Active Substance: CYCLOPHOSPHAMIDE
     Dosage: C1 D5
     Route: 042
     Dates: start: 20240403
  13. CYCLOPHOSPHAMIDE [Suspect]
     Active Substance: CYCLOPHOSPHAMIDE
     Dosage: C2 D5
     Route: 042
     Dates: start: 20240422
  14. CYCLOPHOSPHAMIDE [Suspect]
     Active Substance: CYCLOPHOSPHAMIDE
     Dosage: C2 D5
     Route: 042
     Dates: start: 20240426
  15. OBINUTUZUMAB [Suspect]
     Active Substance: OBINUTUZUMAB
     Indication: Richter^s syndrome
     Dosage: 1000 MG, SINGLE DOSE C2D1
     Route: 042
     Dates: start: 20240422
  16. GLOFITAMAB [Suspect]
     Active Substance: GLOFITAMAB
     Indication: Richter^s syndrome
     Dosage: 2.5 MG, C2D28
     Route: 042
     Dates: start: 20240330
  17. GLOFITAMAB [Suspect]
     Active Substance: GLOFITAMAB
     Dosage: C2D28
     Route: 042
     Dates: start: 20240504
  18. PREDNISONE [Suspect]
     Active Substance: PREDNISONE
     Indication: Richter^s syndrome
     Dosage: 60 MG/M2
     Route: 048
     Dates: start: 20240330
  19. PREDNISONE [Suspect]
     Active Substance: PREDNISONE
     Dosage: C1D5
     Route: 048
     Dates: start: 20240403
  20. PREDNISONE [Suspect]
     Active Substance: PREDNISONE
     Dosage: C2D5
     Route: 048
     Dates: start: 20240422
  21. PREDNISONE [Suspect]
     Active Substance: PREDNISONE
     Dosage: C2D5
     Route: 048
     Dates: start: 20240426
  22. ONDANSETRON [Concomitant]
     Active Substance: ONDANSETRON
     Dosage: FREQ:.5 D;
  23. VALACYCLOVIR HYDROCHLORIDE [Concomitant]
     Active Substance: VALACYCLOVIR HYDROCHLORIDE
     Dosage: 500 MG, 2X/DAY (FREQUENCY 0.5 D)
     Dates: start: 20240330
  24. EMEND [Concomitant]
     Active Substance: APREPITANT
     Dosage: 125 MG
  25. SOTALOL [Concomitant]
     Active Substance: SOTALOL
     Dosage: 80 MG, 2X/DAY (FREQUENCY: 0.5 D)
  26. SODIUM BICARBONATE [Concomitant]
     Active Substance: SODIUM BICARBONATE
     Dosage: UNK, 3X/DAY (FREQUENCY: 0.33 D)
  27. BACTRIM [Concomitant]
     Active Substance: SULFAMETHOXAZOLE\TRIMETHOPRIM
     Dosage: 800 MG, FREQ:.33 WK;
     Dates: start: 20240330

REACTIONS (1)
  - Cytokine release syndrome [Not Recovered/Not Resolved]

NARRATIVE: CASE EVENT DATE: 20240504
